FAERS Safety Report 23503617 (Version 1)
Quarter: 2024Q1

REPORT INFORMATION
  Report Type: Spontaneous
  Country: JP (occurrence: JP)
  Receive Date: 20240208
  Receipt Date: 20240208
  Transmission Date: 20240410
  Serious: Yes (Other)
  Sender: FDA-Public Use
  Company Number: JP-SAKK-01929759

PATIENT

DRUGS (2)
  1. AMARYL [Suspect]
     Active Substance: GLIMEPIRIDE
     Indication: Diabetes mellitus
     Dosage: 0.5 MG
     Route: 048
  2. AMARYL [Suspect]
     Active Substance: GLIMEPIRIDE
     Dosage: 1 MG
     Route: 048

REACTIONS (2)
  - Diabetes mellitus [Unknown]
  - Hepatic function abnormal [Unknown]
